FAERS Safety Report 21017779 (Version 1)
Quarter: 2022Q2

REPORT INFORMATION
  Report Type: Spontaneous
  Country: CR (occurrence: None)
  Receive Date: 20220628
  Receipt Date: 20220628
  Transmission Date: 20220720
  Serious: Yes (Other)
  Sender: FDA-Public Use
  Company Number: 2022A229696

PATIENT
  Age: 18363 Day
  Sex: Male
  Weight: 65 kg

DRUGS (1)
  1. TAGRISSO [Suspect]
     Active Substance: OSIMERTINIB
     Route: 048
     Dates: start: 20220619, end: 20220621

REACTIONS (4)
  - Seizure [Recovering/Resolving]
  - Dyspnoea [Recovering/Resolving]
  - Eye disorder [Recovering/Resolving]
  - Abdominal pain upper [Recovering/Resolving]

NARRATIVE: CASE EVENT DATE: 20220621
